FAERS Safety Report 4464718-7 (Version None)
Quarter: 2004Q4

REPORT INFORMATION
  Report Type: 
  Country: None (occurrence: None)
  Receive Date: 20041004
  Receipt Date: 20040923
  Transmission Date: 20050328
  Serious: Yes (Other)
  Sender: FDA-Public Use
  Company Number: GB-JNJFOC-20040908454

PATIENT

DRUGS (2)
  1. CONCERTA [Suspect]
     Indication: DRUG USE FOR UNKNOWN INDICATION
     Dosage: 36MG IN THE MORNING AND 18MG IN THE AFTERNOON
     Route: 065
  2. MELATONIN [Concomitant]
     Route: 065

REACTIONS (1)
  - VISUAL FIELD DEFECT [None]
